FAERS Safety Report 17113705 (Version 2)
Quarter: 2020Q1

REPORT INFORMATION
  Report Type: Spontaneous
  Country: US (occurrence: US)
  Receive Date: 20191205
  Receipt Date: 20200229
  Transmission Date: 20200409
  Serious: No
  Sender: FDA-Public Use
  Company Number: NVSC2019US058547

PATIENT
  Sex: Female

DRUGS (3)
  1. TASIGNA [Suspect]
     Active Substance: NILOTINIB
     Indication: PRODUCT USED FOR UNKNOWN INDICATION
     Dosage: 600 MG (4 X 28) TAKE TWO CAPSULES BY MOUTH  TWICE A DAY WHOLE WITH WATER ON AN EMPTY STOMACH 1 HOUR
     Route: 048
     Dates: start: 201910
  2. TASIGNA [Suspect]
     Active Substance: NILOTINIB
     Dosage: 600 MG (4 X 28) TAKE TWO CAPSULES BY MOUTH  TWICE A DAY WHOLE WITH WATER ON AN EMPTY STOMACH 1 HOUR
     Route: 048
     Dates: start: 201910
  3. SUCRALFATE. [Concomitant]
     Active Substance: SUCRALFATE
     Indication: PRODUCT USED FOR UNKNOWN INDICATION
     Route: 065

REACTIONS (2)
  - Oesophageal spasm [Recovered/Resolved]
  - Chest pain [Recovered/Resolved]
